FAERS Safety Report 12942036 (Version 1)
Quarter: 2016Q4

REPORT INFORMATION
  Report Type: Report from Study
  Country: CN (occurrence: CN)
  Receive Date: 20161115
  Receipt Date: 20161115
  Transmission Date: 20170207
  Serious: Yes (Death)
  Sender: FDA-Public Use
  Company Number: CN-ROCHE-1618566

PATIENT
  Sex: Male
  Weight: 65 kg

DRUGS (3)
  1. AVASTIN [Suspect]
     Active Substance: BEVACIZUMAB
     Route: 041
     Dates: start: 20150510, end: 20151120
  2. AVASTIN [Suspect]
     Active Substance: BEVACIZUMAB
     Route: 041
  3. AVASTIN [Suspect]
     Active Substance: BEVACIZUMAB
     Indication: COLORECTAL CANCER
     Route: 041
     Dates: start: 20140510

REACTIONS (7)
  - Respiratory failure [Fatal]
  - Spinal column injury [Unknown]
  - Nasopharyngitis [Unknown]
  - Pain [Unknown]
  - Metastasis [Fatal]
  - White blood cell count decreased [Unknown]
  - Bone formation increased [Unknown]
